FAERS Safety Report 14362904 (Version 1)
Quarter: 2018Q1

REPORT INFORMATION
  Report Type: Spontaneous
  Country: US (occurrence: US)
  Receive Date: 20180108
  Receipt Date: 20180108
  Transmission Date: 20180509
  Serious: No
  Sender: FDA-Public Use
  Company Number: US-JNJFOC-20171222678

PATIENT
  Sex: Female

DRUGS (4)
  1. OTEZLA [Suspect]
     Active Substance: APREMILAST
     Indication: PUSTULAR PSORIASIS
     Route: 065
     Dates: start: 2016
  2. STELARA [Suspect]
     Active Substance: USTEKINUMAB
     Indication: CROHN^S DISEASE
     Route: 058
     Dates: start: 2016
  3. STELARA [Suspect]
     Active Substance: USTEKINUMAB
     Indication: PUSTULAR PSORIASIS
     Route: 058
     Dates: start: 2016
  4. OTEZLA [Suspect]
     Active Substance: APREMILAST
     Indication: CROHN^S DISEASE
     Route: 065
     Dates: start: 2016

REACTIONS (2)
  - Alopecia [Unknown]
  - Acne [Not Recovered/Not Resolved]

NARRATIVE: CASE EVENT DATE: 2016
